FAERS Safety Report 4504188-3 (Version None)
Quarter: 2004Q4

REPORT INFORMATION
  Report Type: 
  Country: None (occurrence: None)
  Receive Date: 20041116
  Receipt Date: 20041116
  Transmission Date: 20050328
  Serious: Yes (Hospitalization)
  Sender: FDA-Public Use
  Company Number: None

PATIENT
  Sex: Female

DRUGS (11)
  1. GM-CSF [Suspect]
     Indication: CHRONIC MYELOID LEUKAEMIA
     Dosage: 200 MCG SQ
     Route: 058
     Dates: start: 20040223
  2. GM-CSF [Suspect]
     Indication: CHRONIC MYELOID LEUKAEMIA
     Dosage: 200 MCG SQ
     Route: 058
     Dates: start: 20041104
  3. CELEBREX [Concomitant]
  4. DARVON [Concomitant]
  5. GLEEVEC [Concomitant]
  6. NEXIUM [Concomitant]
  7. TESSALON [Concomitant]
  8. SULINDAC [Concomitant]
  9. SYNTHROID [Concomitant]
  10. TOPROL-XL [Concomitant]
  11. MAXZIDE [Concomitant]

REACTIONS (3)
  - DERMATITIS ALLERGIC [None]
  - DIARRHOEA [None]
  - GOUT [None]
